FAERS Safety Report 6588430-3 (Version None)
Quarter: 2010Q1

REPORT INFORMATION
  Report Type: 
  Country: None (occurrence: None)
  Receive Date: 20100218
  Receipt Date: 20091102
  Transmission Date: 20100710
  Serious: No
  Sender: FDA-Public Use
  Company Number: US-ALLERGAN-0915201US

PATIENT
  Age: 56 Year
  Sex: Female

DRUGS (4)
  1. BOTOX COSMETIC [Suspect]
     Indication: SKIN WRINKLING
     Dosage: 44 UNITS, SINGLE
     Route: 030
     Dates: start: 20091029, end: 20091029
  2. JUVEDERM [Concomitant]
  3. VITAMIN D [Concomitant]
  4. CRESTOR [Concomitant]

REACTIONS (2)
  - CONTUSION [None]
  - EYELID OEDEMA [None]
